FAERS Safety Report 13237427 (Version 1)
Quarter: 2017Q1

REPORT INFORMATION
  Report Type: Spontaneous
  Country: IT (occurrence: IT)
  Receive Date: 20170215
  Receipt Date: 20170215
  Transmission Date: 20170428
  Serious: Yes (Other)
  Sender: FDA-Public Use
  Company Number: IT-MERCK KGAA-1063162

PATIENT
  Age: 81 Year
  Sex: Male

DRUGS (7)
  1. SUTINIB MALATE [Suspect]
     Active Substance: SUNITINIB MALATE
     Dates: start: 200909, end: 201206
  2. SUNITINIB MALATE. [Suspect]
     Active Substance: SUNITINIB MALATE
     Dates: start: 201408, end: 201508
  3. NOVOTHYROX [Suspect]
     Active Substance: LEVOTHYROXINE SODIUM
     Dates: start: 201409
  4. SUNITINIB MALATE. [Suspect]
     Active Substance: SUNITINIB MALATE
     Dates: start: 201508, end: 201601
  5. NOVOTHYROX [Suspect]
     Active Substance: LEVOTHYROXINE SODIUM
     Dates: start: 201406
  6. NOVOTHYROX [Suspect]
     Active Substance: LEVOTHYROXINE SODIUM
     Indication: THYROID DISORDER
     Dates: start: 201103
  7. SUNITINIB MALATE. [Suspect]
     Active Substance: SUNITINIB MALATE
     Dates: start: 201212, end: 201408

REACTIONS (8)
  - Neoplasm progression [Unknown]
  - Abdominal pain [Recovering/Resolving]
  - Toxicity to various agents [Unknown]
  - Asthenia [Unknown]
  - Gastrointestinal toxicity [Recovered/Resolved]
  - Bone marrow toxicity [Recovered/Resolved]
  - Blood thyroid stimulating hormone increased [Not Recovered/Not Resolved]
  - Diarrhoea [Recovering/Resolving]

NARRATIVE: CASE EVENT DATE: 201408
